FAERS Safety Report 5238070-3 (Version None)
Quarter: 2007Q1

REPORT INFORMATION
  Report Type: 
  Country: None (occurrence: None)
  Receive Date: 20070209
  Receipt Date: 20070209
  Transmission Date: 20070707
  Serious: Yes (Other)
  Sender: FDA-Public Use
  Company Number: None

PATIENT
  Sex: Male
  Weight: 118 kg

DRUGS (7)
  1. TESTOSTERONE ENANTHATE [Suspect]
     Indication: BLOOD TESTOSTERONE DECREASED
     Dosage: 300MG Q3 WEEKS IM
     Route: 030
     Dates: start: 20031120, end: 20060401
  2. CHLORPHENIRAMINE MALEATE [Concomitant]
  3. OMEGA-3 [Concomitant]
  4. ZOLOFT [Concomitant]
  5. TERAZOSIN HCL [Concomitant]
  6. LEVITRA [Concomitant]
  7. LOPID [Concomitant]

REACTIONS (1)
  - INJECTION SITE ABSCESS STERILE [None]
